FAERS Safety Report 23187242 (Version 1)
Quarter: 2023Q4

REPORT INFORMATION
  Report Type: Spontaneous
  Country: ES (occurrence: ES)
  Receive Date: 20231115
  Receipt Date: 20231115
  Transmission Date: 20240110
  Serious: Yes (Death, Life-Threatening, Hospitalization, Disabling, Other)
  Sender: FDA-Public Use
  Company Number: ES-PPDUS-2023ST004270

PATIENT
  Age: 79 Year
  Sex: Female

DRUGS (9)
  1. ELZONRIS [Suspect]
     Active Substance: TAGRAXOFUSP-ERZS
     Indication: Product used for unknown indication
     Dosage: 12 MCG/KG
     Route: 042
     Dates: start: 20231026, end: 20231030
  2. DEXAMETHASONE [Concomitant]
     Active Substance: DEXAMETHASONE
     Indication: Pruritus
     Dosage: 4 OR 8 MG, 3 WEEKS
     Dates: start: 20231010, end: 20231031
  3. HYDREA [Concomitant]
     Active Substance: HYDROXYUREA
     Indication: Cytoreductive surgery
     Dosage: 500MG / 8H
     Dates: start: 20231020, end: 20231026
  4. CYTARABINE [Concomitant]
     Active Substance: CYTARABINE
     Indication: Cytoreductive surgery
     Dosage: 40MG/M2
     Dates: start: 20231023, end: 20231025
  5. ENALAPRIL [Concomitant]
     Active Substance: ENALAPRIL
     Indication: Hypertension
     Dosage: 20MG/24 H
  6. ATORVASTATIN [Concomitant]
     Active Substance: ATORVASTATIN
     Indication: Dyslipidaemia
     Dosage: 40 MG/24 H
  7. MEMANTINE [Concomitant]
     Active Substance: MEMANTINE
     Indication: Dementia Alzheimer^s type
     Dosage: 20MG/24H
  8. ASPIRIN [Concomitant]
     Active Substance: ASPIRIN
     Indication: Transient ischaemic attack
     Dosage: 100 MG
  9. ASPIRIN [Concomitant]
     Active Substance: ASPIRIN
     Indication: Angina unstable

REACTIONS (4)
  - Ocular retrobulbar haemorrhage [Recovered/Resolved]
  - Upper gastrointestinal haemorrhage [Unknown]
  - Bronchospasm [Fatal]
  - Capillary leak syndrome [Fatal]

NARRATIVE: CASE EVENT DATE: 20231030
